FAERS Safety Report 5665587-X (Version None)
Quarter: 2008Q1

REPORT INFORMATION
  Report Type: 
  Country: None (occurrence: None)
  Receive Date: 20080314
  Receipt Date: 20071211
  Transmission Date: 20080703
  Serious: Yes (Hospitalization, Other)
  Sender: FDA-Public Use
  Company Number: US-ABBOTT-07P-163-0429006-00

PATIENT
  Sex: Female
  Weight: 82.628 kg

DRUGS (8)
  1. HUMIRA [Suspect]
     Indication: RHEUMATOID ARTHRITIS
     Route: 058
     Dates: start: 20040501, end: 20041201
  2. HUMIRA [Suspect]
     Route: 058
     Dates: start: 20050101, end: 20050101
  3. HUMIRA [Suspect]
     Route: 058
     Dates: start: 20050101
  4. LEVOTHYROXINE SODIUM [Concomitant]
     Indication: HYPOTHYROIDISM
     Route: 048
  5. ACETYLCYSTEINE [Concomitant]
     Indication: LUNG DISORDER
     Route: 048
  6. CALCIUM [Concomitant]
     Indication: VITAMIN SUPPLEMENTATION
     Route: 048
  7. NICOTINIC ACID [Concomitant]
     Indication: BLOOD CHOLESTEROL
     Route: 048
  8. RED YEAST RICE [Concomitant]
     Indication: BLOOD CHOLESTEROL
     Route: 048

REACTIONS (7)
  - ABDOMINAL PAIN [None]
  - DIARRHOEA [None]
  - DIVERTICULITIS [None]
  - DYSPEPSIA [None]
  - DYSPNOEA [None]
  - KIDNEY INFECTION [None]
  - PYREXIA [None]
